FAERS Safety Report 9366058 (Version 1)
Quarter: 2013Q2

REPORT INFORMATION
  Report Type: Spontaneous
  Country: FR (occurrence: FR)
  Receive Date: 20130625
  Receipt Date: 20130625
  Transmission Date: 20140414
  Serious: Yes (Death, Hospitalization)
  Sender: FDA-Public Use
  Company Number: FR-TEVA-414650ISR

PATIENT
  Age: 79 Year
  Sex: Female

DRUGS (2)
  1. FUROSEMIDE TEVA 40 MG [Suspect]
     Dosage: FOR SEVERAL YEARS
  2. INSULIN [Concomitant]
     Indication: DIABETES MELLITUS

REACTIONS (4)
  - Coma [Fatal]
  - Fall [Fatal]
  - Head injury [Fatal]
  - Loss of consciousness [Fatal]
